FAERS Safety Report 5013781-3 (Version None)
Quarter: 2006Q2

REPORT INFORMATION
  Report Type: 
  Country: None (occurrence: None)
  Receive Date: 20060525
  Receipt Date: 20060314
  Transmission Date: 20061013
  Serious: Yes (Death)
  Sender: FDA-Public Use
  Company Number: T200600478

PATIENT
  Age: 43 Year
  Sex: 0

DRUGS (1)
  1. PROPOXYPHENE/APAP (PROPOXYPHENE NAPSYLATE, ACETAMINOPHEN)TABLET, 100/6 [Suspect]
     Dosage: ORAL
     Route: 048

REACTIONS (1)
  - INTENTIONAL DRUG MISUSE [None]
